FAERS Safety Report 14403428 (Version 1)
Quarter: 2018Q1

REPORT INFORMATION
  Report Type: Spontaneous
  Country: US (occurrence: US)
  Receive Date: 20180116
  Receipt Date: 20180116
  Transmission Date: 20180509
  Serious: Yes (Other)
  Sender: FDA-Public Use
  Company Number: None

PATIENT
  Age: 78 Year
  Sex: Male
  Weight: 72.57 kg

DRUGS (1)
  1. EYLEA [Suspect]
     Active Substance: AFLIBERCEPT
     Dosage: 4MG EVERY 4 WEEKS RIGHT EYE
     Route: 047
     Dates: start: 20180112

REACTIONS (1)
  - Eye inflammation [None]

NARRATIVE: CASE EVENT DATE: 20180112
